FAERS Safety Report 4556826-7 (Version None)
Quarter: 2005Q1

REPORT INFORMATION
  Report Type: 
  Country: None (occurrence: None)
  Receive Date: 20050120
  Receipt Date: 20050110
  Transmission Date: 20050727
  Serious: Yes (Hospitalization)
  Sender: FDA-Public Use
  Company Number: US-JNJFOC-20050102944

PATIENT
  Age: 15 Year
  Sex: Female
  Weight: 52.16 kg

DRUGS (4)
  1. ORTHO EVRA [Suspect]
     Route: 062
     Dates: start: 20041001
  2. ALBUTEROL [Concomitant]
     Indication: ASTHMA
     Route: 055
  3. ADVAIR DISKUS 100/50 [Concomitant]
  4. ADVAIR DISKUS 100/50 [Concomitant]
     Indication: ASTHMA

REACTIONS (1)
  - ASTHMA [None]
